FAERS Safety Report 11552591 (Version 3)
Quarter: 2016Q3

REPORT INFORMATION
  Report Type: Report from Study
  Country: JP (occurrence: JP)
  Receive Date: 20150925
  Receipt Date: 20160810
  Transmission Date: 20161109
  Serious: Yes (Other)
  Sender: FDA-Public Use
  Company Number: JP-ROCHE-1637682

PATIENT

DRUGS (6)
  1. BEVACIZUMAB [Suspect]
     Active Substance: BEVACIZUMAB
     Indication: NON-SMALL CELL LUNG CANCER
  2. PEMETREXED [Suspect]
     Active Substance: PEMETREXED
     Indication: MALIGNANT PLEURAL EFFUSION
     Dosage: DAY 1 (BOTH IN INDUCTION AND MAINTENANCE TREATMENT)
     Route: 065
  3. CARBOPLATIN. [Suspect]
     Active Substance: CARBOPLATIN
     Indication: MALIGNANT PLEURAL EFFUSION
     Dosage: AUC 6, ON DAY 1 (ONLY IN INDUCTION TREATMENT)
     Route: 065
  4. PEMETREXED [Suspect]
     Active Substance: PEMETREXED
     Indication: NON-SMALL CELL LUNG CANCER
  5. BEVACIZUMAB [Suspect]
     Active Substance: BEVACIZUMAB
     Indication: MALIGNANT PLEURAL EFFUSION
     Dosage: DAY 1 (BOTH IN INDUCTION AND MAINTENANCE TREATMENT)
     Route: 065
  6. CARBOPLATIN. [Suspect]
     Active Substance: CARBOPLATIN
     Indication: NON-SMALL CELL LUNG CANCER

REACTIONS (9)
  - Decreased appetite [Unknown]
  - Hypertension [Unknown]
  - Leukopenia [Unknown]
  - Thrombocytopenia [Unknown]
  - Proteinuria [Unknown]
  - Infection [Unknown]
  - Liver injury [Unknown]
  - Anaemia [Unknown]
  - Neutropenia [Unknown]
